FAERS Safety Report 14967094 (Version 1)
Quarter: 2018Q2

REPORT INFORMATION
  Report Type: Report from Study
  Country: SA (occurrence: SA)
  Receive Date: 20180604
  Receipt Date: 20180604
  Transmission Date: 20180711
  Serious: Yes (Death)
  Sender: FDA-Public Use
  Company Number: SA-CHEPLA-C20170986

PATIENT

DRUGS (9)
  1. ATRA [Suspect]
     Active Substance: TRETINOIN
     Indication: ACUTE PROMYELOCYTIC LEUKAEMIA
     Dosage: THE ATRA DOSE USED WAS 25 MG/MM2/DAY IN BOTH PROTOCOLS (#PETHEMA^ AND #C9710^)
  2. METHOTREXATE. [Suspect]
     Active Substance: METHOTREXATE
     Indication: ACUTE PROMYELOCYTIC LEUKAEMIA
  3. MERCAPTOPURINE. [Suspect]
     Active Substance: MERCAPTOPURINE
     Indication: ACUTE PROMYELOCYTIC LEUKAEMIA
  4. DAUNORUBICIN [Suspect]
     Active Substance: DAUNORUBICIN
     Indication: ACUTE PROMYELOCYTIC LEUKAEMIA
     Dosage: CUMULATIVE ANTHRACYCLINE EQUIVALENT DOSE: 400 MG/MM2 IN THE ^C9710^ PROTOCOL
  5. ARSENIC TRIOXIDE [Suspect]
     Active Substance: ARSENIC TRIOXIDE
     Indication: ACUTE PROMYELOCYTIC LEUKAEMIA
     Dosage: RELAPSED APL:ATO-BASED THERAPY (WITH/WITHOUT ATRA) I.V. INFUSION UNTIL SECOND CR/MAXIMUM OF 60 DAYS
     Route: 042
  6. IDARUBICIN [Suspect]
     Active Substance: IDARUBICIN
     Indication: ACUTE PROMYELOCYTIC LEUKAEMIA
     Dosage: CUMULATIVE ANTHRACYCLINE EQUIVALENT DOSE RANGED FROM 650 TO 750 MG/MM2 IN THE ^PETHEMA^ PROTOCOL
  7. IDARUBICIN [Suspect]
     Active Substance: IDARUBICIN
     Indication: ACUTE PROMYELOCYTIC LEUKAEMIA
     Dosage: CUMULATIVE ANTHRACYCLINE EQUIVALENT DOSE: 400 MG/MM2 IN THE ^C9710^ PROTOCOL
  8. DAUNORUBICIN [Suspect]
     Active Substance: DAUNORUBICIN
     Indication: ACUTE PROMYELOCYTIC LEUKAEMIA
     Dosage: CUMULATIVE ANTHRACYCLINE EQUIVALENT DOSE RANGED FROM 650 TO 750 MG/MM2 IN THE ^PETHEMA^ PROTOCOL
  9. CYTARABINE. [Suspect]
     Active Substance: CYTARABINE
     Indication: ACUTE PROMYELOCYTIC LEUKAEMIA

REACTIONS (2)
  - Death [Fatal]
  - Leukaemia recurrent [Fatal]
